FAERS Safety Report 11284047 (Version 2)
Quarter: 2015Q4

REPORT INFORMATION
  Report Type: Report from Study
  Country: JP (occurrence: JP)
  Receive Date: 20150720
  Receipt Date: 20151113
  Transmission Date: 20160304
  Serious: Yes (Death, Hospitalization, Other)
  Sender: FDA-Public Use
  Company Number: JP-PFIZER INC-2012164489

PATIENT
  Age: 68 Year
  Sex: Male
  Weight: 58 kg

DRUGS (7)
  1. XALKORI [Suspect]
     Active Substance: CRIZOTINIB
     Dosage: 200 MG, 2X/DAY
     Route: 048
     Dates: start: 20121113, end: 20130318
  2. XALKORI [Suspect]
     Active Substance: CRIZOTINIB
     Indication: NON-SMALL CELL LUNG CANCER
     Dosage: 250 MG, 2X/DAY
     Route: 048
     Dates: start: 20120627, end: 20120709
  3. XALKORI [Suspect]
     Active Substance: CRIZOTINIB
     Dosage: 200 MG, 2X/DAY
     Route: 048
     Dates: start: 20120711, end: 20120720
  4. GASLON [Concomitant]
     Active Substance: IRSOGLADINE MALEATE
     Dosage: 4 MG, 1X/DAY
     Route: 048
     Dates: start: 20120527
  5. MAGMITT [Concomitant]
     Active Substance: MAGNESIUM OXIDE
     Dosage: 500 MG, 3X/DAY
     Route: 048
     Dates: start: 20120612
  6. XALKORI [Suspect]
     Active Substance: CRIZOTINIB
     Dosage: 250 MG, 1X/DAY
     Route: 048
     Dates: start: 20120724, end: 20121112
  7. TRAMAL [Concomitant]
     Active Substance: TRAMADOL
     Dosage: 25 MG, 4X/DAY
     Route: 048
     Dates: start: 20120406

REACTIONS (4)
  - Disease progression [Fatal]
  - Electrocardiogram QT prolonged [Recovering/Resolving]
  - Non-small cell lung cancer [Fatal]
  - Bradycardia [Recovered/Resolved]

NARRATIVE: CASE EVENT DATE: 20120709
